FAERS Safety Report 5264735-3 (Version None)
Quarter: 2007Q1

REPORT INFORMATION
  Report Type: 
  Country: None (occurrence: None)
  Receive Date: 20061124
  Receipt Date: 20060819
  Transmission Date: 20070707
  Serious: Yes (Hospitalization, Disabling, Other)
  Sender: FDA-Public Use
  Company Number: WAES 0607USA01659

PATIENT
  Age: 59 Year
  Sex: Male
  Weight: 100.2449 kg

DRUGS (2)
  1. VYTORIN [Suspect]
     Indication: HYPERLIPIDAEMIA
     Dosage: 10-20 MG/DAILY/PO
     Route: 048
     Dates: start: 20030101
  2. IBUPROFEN [Concomitant]

REACTIONS (3)
  - ADRENAL MASS [None]
  - BLOOD GLUCOSE INCREASED [None]
  - PANCREATITIS [None]
